FAERS Safety Report 9397744 (Version 2)
Quarter: 2013Q3

REPORT INFORMATION
  Report Type: Spontaneous
  Country: IT (occurrence: IT)
  Receive Date: 20130712
  Receipt Date: 20130715
  Transmission Date: 20140515
  Serious: Yes (Hospitalization)
  Sender: FDA-Public Use
  Company Number: IT-SANOFI-AVENTIS-2013SA068816

PATIENT
  Age: 86 Year
  Sex: Male

DRUGS (1)
  1. LASIX [Suspect]
     Indication: HYPERTENSIVE CARDIOMYOPATHY
     Dosage: STRENGTH: 25 MG
     Route: 048

REACTIONS (2)
  - Renal failure acute [Recovering/Resolving]
  - Creatinine renal clearance abnormal [Recovering/Resolving]
